FAERS Safety Report 5890512-6 (Version None)
Quarter: 2008Q3

REPORT INFORMATION
  Report Type: 
  Country: None (occurrence: None)
  Receive Date: 20080922
  Receipt Date: 20080918
  Transmission Date: 20090109
  Serious: Yes (Other)
  Sender: FDA-Public Use
  Company Number: PHHY2008NL21842

PATIENT
  Sex: Male

DRUGS (4)
  1. COMTAN [Suspect]
     Indication: PARKINSON'S DISEASE
  2. SINEMET [Concomitant]
     Dosage: 4X250 MG PER DAY
  3. AVODART [Concomitant]
     Dosage: 0.5 MG PER DAY
  4. TAMSULOSIN HCL [Concomitant]
     Dosage: 0.4 MG PER DAY

REACTIONS (2)
  - DEPRESSION [None]
  - SUICIDAL IDEATION [None]
